FAERS Safety Report 5514725-8 (Version None)
Quarter: 2007Q4

REPORT INFORMATION
  Report Type: 
  Country: None (occurrence: None)
  Receive Date: 20071113
  Receipt Date: 20071101
  Transmission Date: 20080405
  Serious: Yes (Life-Threatening, Hospitalization, Other)
  Sender: FDA-Public Use
  Company Number: US-PFIZER INC-2007092373

PATIENT
  Sex: Female
  Weight: 59.09 kg

DRUGS (5)
  1. NEURONTIN [Suspect]
     Indication: HERPES ZOSTER
     Dates: start: 20050501, end: 20050601
  2. NEURONTIN [Suspect]
     Indication: PAIN
  3. LYRICA [Suspect]
     Indication: PAIN
     Dates: start: 20050601, end: 20071001
  4. LYRICA [Suspect]
     Indication: HERPES ZOSTER
  5. ULTRACET [Concomitant]

REACTIONS (11)
  - ACTIVITIES OF DAILY LIVING IMPAIRED [None]
  - DIARRHOEA [None]
  - HEADACHE [None]
  - INCISIONAL HERNIA [None]
  - INSOMNIA [None]
  - NAUSEA [None]
  - PAIN [None]
  - POSTURAL ORTHOSTATIC TACHYCARDIA SYNDROME [None]
  - RED BLOOD CELL COUNT INCREASED [None]
  - RENAL CELL CARCINOMA STAGE UNSPECIFIED [None]
  - WEIGHT INCREASED [None]
